FAERS Safety Report 4960987-5 (Version None)
Quarter: 2006Q2

REPORT INFORMATION
  Report Type: 
  Country: None (occurrence: None)
  Receive Date: 20060403
  Receipt Date: 20060324
  Transmission Date: 20061013
  Serious: No
  Sender: FDA-Public Use
  Company Number: US-JNJFOC-20060106218

PATIENT
  Sex: Female
  Weight: 42.64 kg

DRUGS (10)
  1. DURAGESIC-100 [Suspect]
     Route: 062
     Dates: start: 20030101
  2. TOPAMAX [Suspect]
     Route: 065
     Dates: start: 20030101, end: 20030101
  3. SYNTHROID [Concomitant]
     Indication: HYPOTHYROIDISM
  4. LISINOPRIL [Concomitant]
     Indication: HYPERTENSION
  5. TENORMIN [Concomitant]
  6. MEVACOR [Concomitant]
  7. PREMARIN [Concomitant]
     Indication: HORMONE REPLACEMENT THERAPY
  8. CARDIZEM [Concomitant]
     Indication: HYPERTENSION
  9. NEXIUM [Concomitant]
  10. ULTRAM [Concomitant]
     Indication: PAIN

REACTIONS (4)
  - CHILLS [None]
  - DRY MOUTH [None]
  - FATIGUE [None]
  - GASTROOESOPHAGEAL REFLUX DISEASE [None]
